FAERS Safety Report 14840061 (Version 2)
Quarter: 2018Q2

REPORT INFORMATION
  Report Type: Spontaneous
  Country: RO (occurrence: RO)
  Receive Date: 20180503
  Receipt Date: 20180521
  Transmission Date: 20180711
  Serious: Yes (Hospitalization, Other)
  Sender: FDA-Public Use
  Company Number: RO-B.I. PHARMACEUTICALS,INC./RIDGEFIELD-2018-BI-023007

PATIENT
  Age: 77 Year
  Sex: Female
  Weight: 85 kg

DRUGS (4)
  1. LANTUS [Concomitant]
     Active Substance: INSULIN GLARGINE
     Indication: PRODUCT USED FOR UNKNOWN INDICATION
     Route: 065
  2. RAMIPRIL. [Concomitant]
     Active Substance: RAMIPRIL
     Indication: PRODUCT USED FOR UNKNOWN INDICATION
     Route: 065
  3. PRADAXA [Suspect]
     Active Substance: DABIGATRAN ETEXILATE MESYLATE
     Indication: ATRIAL FIBRILLATION
     Route: 065
  4. CARVEDILOL. [Concomitant]
     Active Substance: CARVEDILOL
     Indication: PRODUCT USED FOR UNKNOWN INDICATION
     Route: 065

REACTIONS (8)
  - Dyspnoea at rest [Recovered/Resolved]
  - Transaminases increased [Recovered/Resolved]
  - Chest pain [Recovered/Resolved]
  - Cardiogenic shock [Recovered/Resolved]
  - Hyperhidrosis [Recovered/Resolved]
  - Acute myocardial infarction [Recovered/Resolved]
  - Hyperglycaemia [Recovered/Resolved]
  - Leukocytosis [Recovered/Resolved]
